FAERS Safety Report 7298979-6 (Version None)
Quarter: 2011Q1

REPORT INFORMATION
  Report Type: 
  Country: None (occurrence: None)
  Receive Date: 20110217
  Receipt Date: 20110208
  Transmission Date: 20110831
  Serious: Yes (Life-Threatening, Other)
  Sender: FDA-Public Use
  Company Number: KR-GENZYME-THYM-1002282

PATIENT
  Sex: Female
  Weight: 34 kg

DRUGS (15)
  1. CORTICOSTEROIDS [Concomitant]
     Indication: PREMEDICATION
     Dosage: UNK
     Dates: start: 20060202, end: 20060204
  2. THYMOGLOBULIN [Suspect]
     Dosage: 90 MG, QD
     Route: 042
     Dates: start: 20110126, end: 20110127
  3. THYMOGLOBULIN [Suspect]
     Indication: ACUTE LYMPHOCYTIC LEUKAEMIA RECURRENT
     Dosage: 2.5 MG/KG, UNK
     Route: 042
     Dates: start: 20060202, end: 20060204
  4. THYMOGLOBULIN [Suspect]
     Indication: BONE MARROW TRANSPLANT
     Dosage: 90 MG, QD
     Route: 042
     Dates: start: 20110125, end: 20110125
  5. ANTIHISTAMINES [Concomitant]
     Indication: PREMEDICATION
     Dosage: UNK
     Dates: start: 20060202, end: 20060204
  6. CYCLOPHOSPHAMIDE [Concomitant]
     Indication: BONE MARROW CONDITIONING REGIMEN
     Dosage: 1805 MG, QD
     Route: 042
     Dates: start: 20110123, end: 20110125
  7. HEPARIN [Concomitant]
     Indication: PROPHYLAXIS
     Dosage: 3600 IU, UNK
     Route: 042
     Dates: start: 20110119
  8. TYLENOL [Concomitant]
     Dosage: 325 MG, QD
     Route: 048
     Dates: start: 20110131, end: 20110131
  9. CHLORPHENAMINE [Concomitant]
     Indication: PREMEDICATION
     Dosage: 4 MG, QD
     Dates: start: 20110125, end: 20110127
  10. TYLENOL [Concomitant]
     Indication: PREMEDICATION
     Dosage: 325 MG, QD
     Route: 048
     Dates: start: 20110125, end: 20110127
  11. PROSTAGLANDIN E1 [Concomitant]
     Indication: PROPHYLAXIS
     Dosage: 30 MCG, UNK
     Route: 042
     Dates: start: 20110125
  12. ACETAMINOPHEN [Concomitant]
     Indication: PREMEDICATION
     Dosage: UNK
     Dates: start: 20060202, end: 20060204
  13. THYMOGLOBULIN [Suspect]
     Dosage: 90 UNK, UNK
     Route: 042
     Dates: start: 20110131, end: 20110131
  14. CHLORPHENAMINE [Concomitant]
     Dosage: 4 MG, QD
     Dates: start: 20110131, end: 20110131
  15. SOLU-MEDROL [Concomitant]
     Indication: PREMEDICATION
     Dosage: 35 UNK, UNK
     Dates: start: 20110125, end: 20110127

REACTIONS (7)
  - PULMONARY OEDEMA [None]
  - SHOCK [None]
  - HYPOXIA [None]
  - PYREXIA [None]
  - RENAL IMPAIRMENT [None]
  - LYMPHOCYTE COUNT DECREASED [None]
  - HYPOTENSION [None]
